FAERS Safety Report 8110308-4 (Version None)
Quarter: 2012Q1

REPORT INFORMATION
  Report Type: 
  Country: None (occurrence: None)
  Receive Date: 20120202
  Receipt Date: 20120124
  Transmission Date: 20120608
  Serious: Yes (Hospitalization)
  Sender: FDA-Public Use
  Company Number: PHHY2012ES006041

PATIENT
  Age: 76 Year
  Sex: Male

DRUGS (5)
  1. SINTROM [Interacting]
     Indication: CARDIAC VALVE DISEASE
     Route: 048
     Dates: start: 20000101, end: 20081217
  2. ACETYLSALICYLIC ACID SRT [Interacting]
     Indication: PROPHYLAXIS
     Dosage: 100 MG, QD
     Dates: start: 20081210, end: 20081217
  3. CLOPIDOGREL [Interacting]
     Dosage: 75 MG, QD
     Dates: start: 20081127, end: 20081217
  4. OMEPRAZOLE [Suspect]
     Indication: PROPHYLAXIS
     Dosage: 20 MG, QD
     Route: 048
     Dates: end: 20081217
  5. PLAVIX [Interacting]
     Indication: PROPHYLAXIS
     Dosage: 40 MG, QD
     Dates: start: 20081210, end: 20081217

REACTIONS (5)
  - HIATUS HERNIA [None]
  - RECTAL HAEMORRHAGE [None]
  - DRUG INTERACTION [None]
  - LOWER GASTROINTESTINAL HAEMORRHAGE [None]
  - DIVERTICULUM INTESTINAL [None]
